FAERS Safety Report 9403149 (Version 1)
Quarter: 2013Q3

REPORT INFORMATION
  Report Type: Spontaneous
  Country: JP (occurrence: JP)
  Receive Date: 20130716
  Receipt Date: 20130716
  Transmission Date: 20140515
  Serious: Yes (Hospitalization)
  Sender: FDA-Public Use
  Company Number: JP-GLAXOSMITHKLINE-B0906537A

PATIENT
  Sex: Male

DRUGS (4)
  1. VALTREX [Suspect]
     Indication: HERPES ZOSTER
     Route: 048
  2. LOXOPROFEN SODIUM [Concomitant]
     Route: 048
  3. METHYCOBAL [Concomitant]
     Route: 065
  4. CYTOTEC [Concomitant]
     Route: 048

REACTIONS (3)
  - Renal failure acute [Recovered/Resolved]
  - Cerebral infarction [Unknown]
  - Renal impairment [Unknown]
